FAERS Safety Report 7343792-4 (Version None)
Quarter: 2011Q1

REPORT INFORMATION
  Report Type: 
  Country: None (occurrence: None)
  Receive Date: 20110310
  Receipt Date: 20110302
  Transmission Date: 20110831
  Serious: Yes (Hospitalization, Other)
  Sender: FDA-Public Use
  Company Number: JP-ROCHE-708939

PATIENT
  Sex: Male
  Weight: 55 kg

DRUGS (34)
  1. ACTEMRA [Suspect]
     Route: 041
     Dates: start: 20090108, end: 20090108
  2. ACTEMRA [Suspect]
     Route: 041
     Dates: start: 20090528, end: 20090528
  3. ACTEMRA [Suspect]
     Route: 041
     Dates: start: 20100629, end: 20100629
  4. ACTEMRA [Suspect]
     Route: 041
     Dates: start: 20081211, end: 20081211
  5. ACTEMRA [Suspect]
     Route: 041
     Dates: start: 20090723, end: 20090723
  6. ACTEMRA [Suspect]
     Route: 041
     Dates: start: 20091015, end: 20091015
  7. PYDOXAL [Concomitant]
     Route: 048
  8. ACTEMRA [Suspect]
     Route: 041
     Dates: start: 20100401, end: 20100401
  9. ACTEMRA [Suspect]
     Route: 041
     Dates: start: 20100601, end: 20100601
  10. ACTEMRA [Suspect]
     Route: 041
     Dates: start: 20090305, end: 20090305
  11. ACTEMRA [Suspect]
     Route: 041
     Dates: start: 20090430, end: 20090430
  12. PREDONINE [Concomitant]
     Route: 048
     Dates: end: 20090107
  13. TAKEPRON [Concomitant]
     Dosage: PERORAL AGENT
     Route: 048
  14. FOLIAMIN [Concomitant]
     Dosage: FORM: PER ORAL AGENT
     Route: 048
  15. ACTEMRA [Suspect]
     Route: 041
     Dates: start: 20081010, end: 20081010
  16. ACTEMRA [Suspect]
     Route: 041
     Dates: start: 20090205, end: 20090205
  17. ISCOTIN [Concomitant]
     Dosage: FORM: PERORAL AGENT
     Route: 048
  18. PREDONINE [Concomitant]
     Route: 048
     Dates: start: 20090108
  19. LOXONIN [Concomitant]
     Dosage: FORM: PERORAL AGENT
     Route: 048
  20. ACTEMRA [Suspect]
     Indication: RHEUMATOID ARTHRITIS
     Route: 041
     Dates: start: 20080813, end: 20080813
  21. ACTEMRA [Suspect]
     Route: 041
     Dates: start: 20081113, end: 20081113
  22. ACTEMRA [Suspect]
     Route: 041
     Dates: start: 20090820, end: 20090820
  23. ACTEMRA [Suspect]
     Route: 041
     Dates: start: 20091112, end: 20091112
  24. ACTEMRA [Suspect]
     Route: 041
     Dates: start: 20091210, end: 20091210
  25. ACTEMRA [Suspect]
     Route: 041
     Dates: start: 20100107, end: 20100107
  26. ACTEMRA [Suspect]
     Route: 041
     Dates: start: 20100209, end: 20100209
  27. ACTEMRA [Suspect]
     Route: 041
     Dates: start: 20100304, end: 20100304
  28. ACTEMRA [Suspect]
     Route: 041
     Dates: start: 20080910, end: 20080910
  29. ACTEMRA [Suspect]
     Route: 041
     Dates: start: 20090402, end: 20090402
  30. ACTEMRA [Suspect]
     Route: 041
     Dates: start: 20090625, end: 20090625
  31. ACTEMRA [Suspect]
     Route: 041
     Dates: start: 20090917, end: 20090917
  32. ACTEMRA [Suspect]
     Dosage: STOP DATE 27 JULY 2010.
     Route: 041
     Dates: start: 20100727
  33. RHEUMATREX [Concomitant]
     Route: 048
  34. CYTOTEC [Concomitant]
     Route: 048

REACTIONS (3)
  - CELLULITIS [None]
  - DEEP VEIN THROMBOSIS [None]
  - RHEUMATOID ARTHRITIS [None]
